FAERS Safety Report 6936073-1 (Version None)
Quarter: 2010Q3

REPORT INFORMATION
  Report Type: 
  Country: None (occurrence: None)
  Receive Date: 20100819
  Receipt Date: 20100819
  Transmission Date: 20110219
  Serious: No
  Sender: FDA-Public Use
  Company Number: None

PATIENT
  Age: 31 Year
  Sex: Female
  Weight: 58.9676 kg

DRUGS (2)
  1. TRAZODONE HCL [Suspect]
     Indication: INSOMNIA
     Dosage: 275MG DAILY PO
     Route: 048
     Dates: start: 20080410, end: 20090810
  2. TRAZODONE HCL [Suspect]
     Indication: PAIN
     Dosage: 275MG DAILY PO
     Route: 048
     Dates: start: 20080410, end: 20090810

REACTIONS (1)
  - HEPATIC CIRRHOSIS [None]
